FAERS Safety Report 17181293 (Version 1)
Quarter: 2019Q4

REPORT INFORMATION
  Report Type: Spontaneous
  Country: DZ (occurrence: DZ)
  Receive Date: 20191220
  Receipt Date: 20191220
  Transmission Date: 20200122
  Serious: Yes (Disabling, Other)
  Sender: FDA-Public Use
  Company Number: DZ-AMGEN-DZASP2019208528

PATIENT
  Age: 67 Year
  Sex: Female

DRUGS (1)
  1. VECTIBIX [Suspect]
     Active Substance: PANITUMUMAB
     Indication: RECTAL CANCER METASTATIC
     Dosage: 6 MILLIGRAM/KILOGRAM, (15 DAYS)
     Route: 042
     Dates: start: 201906, end: 20191128

REACTIONS (2)
  - Eye injury [Recovered/Resolved]
  - Rash [Unknown]

NARRATIVE: CASE EVENT DATE: 2019
